FAERS Safety Report 6672688-6 (Version None)
Quarter: 2010Q2

REPORT INFORMATION
  Report Type: 
  Country: None (occurrence: None)
  Receive Date: 20100408
  Receipt Date: 20100401
  Transmission Date: 20101027
  Serious: Yes (Hospitalization)
  Sender: FDA-Public Use
  Company Number: JP-ROCHE-691527

PATIENT
  Sex: Female
  Weight: 13 kg

DRUGS (5)
  1. ROCEPHIN [Suspect]
     Indication: PNEUMONIA
     Route: 041
     Dates: start: 20090824, end: 20090830
  2. ROCEPHIN [Suspect]
     Route: 041
     Dates: start: 20090831, end: 20090902
  3. MYONAL [Concomitant]
     Route: 048
  4. LIORESAL [Concomitant]
     Route: 048
  5. PHENOBARBITAL TAB [Concomitant]

REACTIONS (1)
  - CHOLELITHIASIS [None]
